FAERS Safety Report 19175393 (Version 4)
Quarter: 2021Q3

REPORT INFORMATION
  Report Type: Spontaneous
  Country: US (occurrence: US)
  Receive Date: 20210424
  Receipt Date: 20210702
  Transmission Date: 20211014
  Serious: Yes (Hospitalization)
  Sender: FDA-Public Use
  Company Number: US-BIOVITRUM-2021US3871

PATIENT
  Age: 1 Year
  Sex: Male
  Weight: 9.07 kg

DRUGS (6)
  1. SYNAGIS [Suspect]
     Active Substance: PALIVIZUMAB
     Indication: LOW BIRTH WEIGHT BABY
  2. SYNTHROID [Concomitant]
     Active Substance: LEVOTHYROXINE SODIUM
  3. VIGABATRIN. [Concomitant]
     Active Substance: VIGABATRIN
  4. SYNAGIS [Suspect]
     Active Substance: PALIVIZUMAB
     Indication: TRISOMY 21
     Dosage: SYNAGIS 50MG/0.5ML VL LIQUID
     Route: 030
     Dates: start: 20201118
  5. DIGOXIN. [Concomitant]
     Active Substance: DIGOXIN
     Dosage: 50 MCG/ML SOLUTION
  6. SILDENAFIL. [Concomitant]
     Active Substance: SILDENAFIL

REACTIONS (5)
  - Muscle spasms [Unknown]
  - Dehydration [Unknown]
  - Abdominal discomfort [Unknown]
  - Viral infection [Unknown]
  - Vomiting [Unknown]

NARRATIVE: CASE EVENT DATE: 20210604
